FAERS Safety Report 16129045 (Version 1)
Quarter: 2019Q1

REPORT INFORMATION
  Report Type: Report from Study
  Country: US (occurrence: US)
  Receive Date: 20190328
  Receipt Date: 20190328
  Transmission Date: 20190418
  Serious: Yes (Death)
  Sender: FDA-Public Use
  Company Number: US-TAIHO ONCOLOGY  INC-EU-2019-00880

PATIENT
  Age: 60 Year
  Sex: Male
  Weight: 102.15 kg

DRUGS (19)
  1. DEXAMETHASONE. [Concomitant]
     Active Substance: DEXAMETHASONE
     Dosage: NI
  2. MORPHINE SULFATE. [Concomitant]
     Active Substance: MORPHINE SULFATE
     Dosage: NI
  3. NARCAN [Concomitant]
     Active Substance: NALOXONE HYDROCHLORIDE
     Dosage: NI
  4. GENTLE LAXATIVE [Concomitant]
     Active Substance: BISACODYL
     Dosage: NI
  5. AMITIZA [Concomitant]
     Active Substance: LUBIPROSTONE
     Dosage: NI
  6. TAMSULOSIN [Concomitant]
     Active Substance: TAMSULOSIN
     Dosage: NI
  7. URSODIOL. [Concomitant]
     Active Substance: URSODIOL
     Dosage: NI
  8. RANITIDINE. [Concomitant]
     Active Substance: RANITIDINE
     Dosage: NI
  9. OXYCODONE [Concomitant]
     Active Substance: OXYCODONE
     Dosage: NI
  10. LONSURF [Suspect]
     Active Substance: TIPIRACIL HYDROCHLORIDE\TRIFLURIDINE
     Indication: COLORECTAL CANCER METASTATIC
     Dosage: CURRENT CYCLE UNKNOWN
     Route: 048
     Dates: start: 20190128, end: 2019
  11. ONDANSETRON [Concomitant]
     Active Substance: ONDANSETRON
     Dosage: NI
  12. METOCHLOPRAMIDE [Concomitant]
     Active Substance: METOCLOPRAMIDE HYDROCHLORIDE
     Dosage: NI
  13. ELIQUIS [Concomitant]
     Active Substance: APIXABAN
     Dosage: NI
  14. PEG 3350-ELECTROLYTES [Concomitant]
     Dosage: NI
  15. TEMAZEPAM. [Concomitant]
     Active Substance: TEMAZEPAM
     Dosage: NI
  16. CONSTULOSE [Concomitant]
     Active Substance: LACTULOSE
     Dosage: NI
  17. PRAMIPEXOLE. [Concomitant]
     Active Substance: PRAMIPEXOLE
     Dosage: NI
  18. LEVOFLOXACIN. [Concomitant]
     Active Substance: LEVOFLOXACIN
     Dosage: NI
  19. XIFAXAN [Concomitant]
     Active Substance: RIFAXIMIN
     Dosage: NI

REACTIONS (1)
  - Death [Fatal]

NARRATIVE: CASE EVENT DATE: 20190318
